FAERS Safety Report 7261785-2 (Version None)
Quarter: 2011Q1

REPORT INFORMATION
  Report Type: 
  Country: None (occurrence: None)
  Receive Date: 20110130
  Receipt Date: 20101221
  Transmission Date: 20110831
  Serious: No
  Sender: FDA-Public Use
  Company Number: US-ABBOTT-10P-163-0688486-00

PATIENT
  Sex: Male

DRUGS (9)
  1. HUMIRA [Suspect]
     Indication: ANKYLOSING SPONDYLITIS
     Dates: start: 20101215, end: 20101215
  2. LINDEL [Concomitant]
     Indication: CROHN'S DISEASE
     Dates: start: 20100301
  3. LIALDA [Concomitant]
     Indication: CROHN'S DISEASE
  4. VICODIN [Concomitant]
     Indication: PAIN
     Dosage: 5/500MG AS NEEDED FOR PAIN
  5. FLU SHOT [Concomitant]
     Indication: PRODUCT USED FOR UNKNOWN INDICATION
     Dates: start: 20101209, end: 20101209
  6. LINDEL [Concomitant]
     Indication: PAIN
  7. TB TEST [Concomitant]
     Indication: PRODUCT USED FOR UNKNOWN INDICATION
     Dates: start: 20101209, end: 20101209
  8. HUMIRA [Suspect]
     Indication: CROHN'S DISEASE
  9. HEPATITIS B VACCINE [Concomitant]
     Indication: PRODUCT USED FOR UNKNOWN INDICATION
     Dates: start: 20101215, end: 20101215

REACTIONS (6)
  - INJECTION SITE PAIN [None]
  - SINUSITIS [None]
  - PARANASAL SINUS HYPERSECRETION [None]
  - HEADACHE [None]
  - WEIGHT INCREASED [None]
  - NAUSEA [None]
